FAERS Safety Report 5516684-0 (Version None)
Quarter: 2007Q4

REPORT INFORMATION
  Report Type: 
  Country: None (occurrence: None)
  Receive Date: 20071114
  Receipt Date: 20070419
  Transmission Date: 20080405
  Serious: No
  Sender: FDA-Public Use
  Company Number: A0647766A

PATIENT
  Age: 58 Year

DRUGS (4)
  1. COMMIT [Suspect]
  2. UNSPECIFIED MEDICATION [Concomitant]
  3. DIURETIC [Concomitant]
  4. HORMONE REPLACEMENT THERAPY [Concomitant]

REACTIONS (4)
  - DYSGEUSIA [None]
  - FLATULENCE [None]
  - INTENTIONAL DRUG MISUSE [None]
  - OVERDOSE [None]
